FAERS Safety Report 18339187 (Version 1)
Quarter: 2020Q4

REPORT INFORMATION
  Report Type: Spontaneous
  Country: CZ (occurrence: CZ)
  Receive Date: 20201002
  Receipt Date: 20201002
  Transmission Date: 20210113
  Serious: Yes (Other)
  Sender: FDA-Public Use
  Company Number: CZ-ALLERGAN-2037456US

PATIENT
  Sex: Female

DRUGS (1)
  1. LEVONORGESTREL - BP [Suspect]
     Active Substance: LEVONORGESTREL
     Indication: CONTRACEPTION
     Dosage: 52 MG, AT AN INITIAL RELEASE RATE OF 20 MICROGRAM PER 24 HOURS
     Route: 015
     Dates: start: 201610

REACTIONS (3)
  - Drug ineffective [Unknown]
  - Amenorrhoea [Unknown]
  - Pregnancy [Unknown]

NARRATIVE: CASE EVENT DATE: 20200916
